FAERS Safety Report 12379438 (Version 1)
Quarter: 2016Q2

REPORT INFORMATION
  Report Type: Spontaneous
  Country: US (occurrence: US)
  Receive Date: 20160517
  Receipt Date: 20160517
  Transmission Date: 20160815
  Serious: No
  Sender: FDA-Public Use
  Company Number: US-TEIKOKU PHARMA USA-TPU2015-00310

PATIENT
  Sex: Female
  Weight: 52.21 kg

DRUGS (9)
  1. CITRACAL [Concomitant]
     Active Substance: CALCIUM CITRATE
     Indication: ARTHROPATHY
     Route: 048
  2. CLONAZEPAM. [Concomitant]
     Active Substance: CLONAZEPAM
     Indication: INSOMNIA
     Dosage: 1/2 TABLET AT NIGHT
     Route: 048
     Dates: start: 2012
  3. BABY ASPIRIN [Concomitant]
     Active Substance: ASPIRIN
     Indication: ARTHROPATHY
     Route: 048
  4. ZOLPIDEM [Concomitant]
     Active Substance: ZOLPIDEM\ZOLPIDEM TARTRATE
     Indication: INSOMNIA
     Route: 048
     Dates: start: 2002
  5. TRIAMTERENE. [Concomitant]
     Active Substance: TRIAMTERENE
     Indication: HYPERTENSION
     Route: 048
     Dates: start: 2005
  6. VITAMIN B12 [Concomitant]
     Active Substance: CYANOCOBALAMIN
     Indication: ARTHROPATHY
     Route: 048
  7. COQ 10 [Concomitant]
     Active Substance: UBIDECARENONE
     Route: 048
  8. PROBIOTICS [Concomitant]
     Active Substance: PROBIOTICS NOS
     Route: 048
  9. LIDODERM [Suspect]
     Active Substance: LIDOCAINE
     Indication: ARTHRITIS
     Route: 061
     Dates: start: 2005

REACTIONS (2)
  - Onychoclasis [Unknown]
  - Abnormal loss of weight [Not Recovered/Not Resolved]
